FAERS Safety Report 9420170 (Version 1)
Quarter: 2013Q3

REPORT INFORMATION
  Report Type: Spontaneous
  Country: US (occurrence: None)
  Receive Date: 20130723
  Receipt Date: 20130723
  Transmission Date: 20140515
  Serious: Yes (Hospitalization)
  Sender: FDA-Public Use
  Company Number: None

PATIENT
  Age: 59 Year
  Sex: Male
  Weight: 83.6 kg

DRUGS (2)
  1. FUROSEMIDE [Suspect]
     Indication: OEDEMA
     Dosage: PRN PO
     Route: 048
     Dates: start: 20120801, end: 20130620
  2. FUROSEMIDE [Suspect]
     Indication: POST PROCEDURAL INFECTION
     Dosage: PRN PO
     Route: 048
     Dates: start: 20120801, end: 20130620

REACTIONS (3)
  - Hypokalaemia [None]
  - Hypomagnesaemia [None]
  - Self-medication [None]
